FAERS Safety Report 19736967 (Version 4)
Quarter: 2021Q3

REPORT INFORMATION
  Report Type: Report from Study
  Country: US (occurrence: US)
  Receive Date: 20210823
  Receipt Date: 20210901
  Transmission Date: 20211014
  Serious: No
  Sender: FDA-Public Use
  Company Number: NVSC2021US186431

PATIENT
  Age: 20 Year
  Sex: Female

DRUGS (1)
  1. ILARIS [Suspect]
     Active Substance: CANAKINUMAB
     Indication: PYREXIA
     Dosage: 300 MG, QMO
     Route: 058

REACTIONS (4)
  - Nausea [Unknown]
  - Dizziness [Unknown]
  - Condition aggravated [Unknown]
  - Pyrexia [Unknown]

NARRATIVE: CASE EVENT DATE: 20210811
